FAERS Safety Report 5937846-4 (Version None)
Quarter: 2008Q4

REPORT INFORMATION
  Report Type: 
  Country: None (occurrence: None)
  Receive Date: 20081031
  Receipt Date: 20080820
  Transmission Date: 20090506
  Serious: No
  Sender: FDA-Public Use
  Company Number: US-BAYER-200832050NA

PATIENT
  Age: 57 Year
  Sex: Female
  Weight: 66 kg

DRUGS (8)
  1. ULTRAVIST 370 [Suspect]
     Indication: COMPUTERISED TOMOGRAM THORAX
     Dosage: TOTAL DAILY DOSE: 120  ML  UNIT DOSE: 500 ML
     Route: 042
     Dates: start: 20080820, end: 20080820
  2. ULTRAVIST (PHARMACY BULK) [Concomitant]
     Indication: COMPUTERISED TOMOGRAM THORAX
     Route: 048
     Dates: start: 20080820, end: 20080820
  3. SYNTHROID [Concomitant]
  4. ACTONEL [Concomitant]
  5. MOTRIN [Concomitant]
  6. ATIVAN [Concomitant]
  7. TRAZODONE HCL [Concomitant]
  8. FLONASE [Concomitant]

REACTIONS (1)
  - RASH [None]
